FAERS Safety Report 11232007 (Version 1)
Quarter: 2015Q3

REPORT INFORMATION
  Report Type: Spontaneous
  Country: US (occurrence: US)
  Receive Date: 20150701
  Receipt Date: 20150701
  Transmission Date: 20151125
  Serious: Yes (Other)
  Sender: FDA-Public Use
  Company Number: US-TEVA-574783ACC

PATIENT
  Age: 42 Year
  Sex: Female

DRUGS (1)
  1. PARAGARD T 380A [Suspect]
     Active Substance: COPPER
     Indication: CONTRACEPTION
     Route: 015
     Dates: start: 20150515, end: 20150605

REACTIONS (4)
  - Device dislocation [Recovered/Resolved]
  - Pelvic discomfort [Recovered/Resolved]
  - Pelvic pain [Recovered/Resolved]
  - Uterine leiomyoma [Not Recovered/Not Resolved]

NARRATIVE: CASE EVENT DATE: 20150602
